FAERS Safety Report 6558768-4 (Version None)
Quarter: 2010Q1

REPORT INFORMATION
  Report Type: 
  Country: None (occurrence: None)
  Receive Date: 20100129
  Receipt Date: 20100118
  Transmission Date: 20100710
  Serious: No
  Sender: FDA-Public Use
  Company Number: US-B.I. PHARMACEUTICALS,INC./RIDGEFIELD-2010-BP-00639BP

PATIENT
  Sex: Male

DRUGS (4)
  1. FLOMAX [Suspect]
     Indication: POLLAKIURIA
     Dosage: 0.4 MG
     Route: 048
  2. NAPROXEN [Concomitant]
     Indication: ARTHRITIS
  3. OMEPRAZOLE [Concomitant]
     Indication: DYSPEPSIA
  4. ZOCOR [Concomitant]
     Indication: BLOOD CHOLESTEROL INCREASED

REACTIONS (1)
  - FEELING ABNORMAL [None]
